FAERS Safety Report 4823695-7 (Version None)
Quarter: 2005Q4

REPORT INFORMATION
  Report Type: 
  Country: None (occurrence: None)
  Receive Date: 20051109
  Receipt Date: 20051031
  Transmission Date: 20060501
  Serious: Yes (Hospitalization)
  Sender: FDA-Public Use
  Company Number: PHBS2005BR16173

PATIENT
  Age: 23 Year
  Sex: Male
  Weight: 95 kg

DRUGS (1)
  1. RITALIN [Suspect]
     Dosage: 20 DF, ONCE/SINGLE
     Route: 048
     Dates: start: 20051031, end: 20051031

REACTIONS (5)
  - GASTRIC LAVAGE [None]
  - HYPERTENSION [None]
  - INTENTIONAL DRUG MISUSE [None]
  - MUSCLE SPASMS [None]
  - NERVOUSNESS [None]
